FAERS Safety Report 12387044 (Version 1)
Quarter: 2016Q2

REPORT INFORMATION
  Report Type: Report from Study
  Country: CA (occurrence: CA)
  Receive Date: 20160519
  Receipt Date: 20160519
  Transmission Date: 20160815
  Serious: Yes (Death)
  Sender: FDA-Public Use
  Company Number: CA-HLSUS-2016-CA-000131

PATIENT
  Age: 91 Year
  Sex: Male

DRUGS (7)
  1. DEXILANT [Concomitant]
     Active Substance: DEXLANSOPRAZOLE
  2. FLORINEF ACETATE [Concomitant]
     Active Substance: FLUDROCORTISONE ACETATE
     Dosage: 0.1 MG
  3. DOMPERIDONE [Concomitant]
     Active Substance: DOMPERIDONE
  4. CLOZARIL [Suspect]
     Active Substance: CLOZAPINE
     Indication: SCHIZOPHRENIA
     Dosage: 25MG IN MORNING 37.5MG BEDTIME
     Route: 048
     Dates: start: 1980
  5. SCOPOLAMINE [Concomitant]
     Active Substance: SCOPOLAMINE
  6. LORAZEPAM. [Concomitant]
     Active Substance: LORAZEPAM
  7. SINEMET [Concomitant]
     Active Substance: CARBIDOPA\LEVODOPA
     Dosage: 100/25 OT

REACTIONS (8)
  - Cachexia [Fatal]
  - Platelet count decreased [Unknown]
  - Blood thyroid stimulating hormone increased [Unknown]
  - Cerebrovascular accident [Fatal]
  - Hypernatraemia [Fatal]
  - Blood creatinine increased [Unknown]
  - Haemoglobin decreased [Unknown]
  - Blood cadmium decreased [Unknown]
